FAERS Safety Report 7280117-7 (Version None)
Quarter: 2011Q1

REPORT INFORMATION
  Report Type: 
  Country: None (occurrence: None)
  Receive Date: 20110208
  Receipt Date: 20110201
  Transmission Date: 20110831
  Serious: Yes (Other)
  Sender: FDA-Public Use
  Company Number: US-US-EMD SERONO, INC.-7036640

PATIENT
  Sex: Female

DRUGS (4)
  1. TYLENOL-500 [Concomitant]
     Indication: PREMEDICATION
  2. REBIF [Suspect]
     Indication: PRODUCT USED FOR UNKNOWN INDICATION
     Route: 058
     Dates: start: 20110110, end: 20110101
  3. CELEBREX [Concomitant]
     Indication: OSTEOARTHRITIS
  4. REBIF [Suspect]
     Route: 058
     Dates: start: 20110101, end: 20110124

REACTIONS (4)
  - ARTHRITIS [None]
  - PYREXIA [None]
  - INJECTION SITE ERYTHEMA [None]
  - VASCULITIS [None]
